FAERS Safety Report 7932497-4 (Version None)
Quarter: 2011Q4

REPORT INFORMATION
  Report Type: 
  Country: None (occurrence: None)
  Receive Date: 20111122
  Receipt Date: 20111115
  Transmission Date: 20120403
  Serious: No
  Sender: FDA-Public Use
  Company Number: US-BIOGENIDEC-2011BI033869

PATIENT
  Sex: Female

DRUGS (1)
  1. TYSABRI [Suspect]
     Indication: MULTIPLE SCLEROSIS
     Route: 042
     Dates: start: 20080716, end: 20110701

REACTIONS (10)
  - STRESS [None]
  - ASTHENIA [None]
  - DEPRESSED MOOD [None]
  - PAIN IN EXTREMITY [None]
  - TENSION HEADACHE [None]
  - MULTIPLE SCLEROSIS RELAPSE [None]
  - HYPOAESTHESIA [None]
  - PAIN [None]
  - FEELING ABNORMAL [None]
  - DEPRESSION [None]
